FAERS Safety Report 9539017 (Version 6)
Quarter: 2020Q2

REPORT INFORMATION
  Report Type: Report from Study
  Country: DE (occurrence: DE)
  Receive Date: 20130920
  Receipt Date: 20200528
  Transmission Date: 20200714
  Serious: Yes (Death, Hospitalization, Other)
  Sender: FDA-Public Use
  Company Number: PHHO2013DE008915

PATIENT
  Age: 72 Year
  Sex: Male
  Weight: 78 kg

DRUGS (11)
  1. BISOPROLOL [Concomitant]
     Active Substance: BISOPROLOL
     Indication: CARDIAC FAILURE
     Dosage: 2.5 MG, 1-0-0
     Route: 065
  2. TOREM [Concomitant]
     Active Substance: TORSEMIDE
     Indication: CARDIAC FAILURE
     Dosage: 5 MG, 1-0-0
     Route: 065
  3. BLINDED NO TREATMENT RECEIVED [Suspect]
     Active Substance: INVESTIGATIONAL PRODUCT
     Indication: SCHNITZLER^S SYNDROME
     Route: 058
  4. BLINDED ACZ885 [Suspect]
     Active Substance: CANAKINUMAB
     Indication: SCHNITZLER^S SYNDROME
     Route: 058
  5. PLACEBO [Suspect]
     Active Substance: UNSPECIFIED INGREDIENT
     Indication: SCHNITZLER^S SYNDROME
     Route: 058
  6. CANAKINUMAB. [Suspect]
     Active Substance: CANAKINUMAB
     Indication: SCHNITZLER^S SYNDROME
     Dosage: 300 MG, UNK
     Route: 058
     Dates: start: 20120824, end: 20130605
  7. CALCIUM + VITAMIN D3 [Concomitant]
     Active Substance: CALCIUM CARBONATE\CHOLECALCIFEROL
     Indication: OSTEOPOROSIS
     Dosage: 1000MG CA, 880 IE VITD3
     Route: 065
  8. BLINDED ACZ885 [Suspect]
     Active Substance: CANAKINUMAB
     Indication: SCHNITZLER^S SYNDROME
     Route: 058
  9. ASPIRIN. [Concomitant]
     Active Substance: ASPIRIN
     Indication: CARDIAC FAILURE
     Dosage: 100 MG, 0-1-0
     Route: 065
  10. DECORTIN H [Concomitant]
     Active Substance: PREDNISOLONE
     Indication: SCHNITZLER^S SYNDROME
     Dosage: 12.5 MG, 1-0-0
     Route: 065
     Dates: start: 20120810
  11. BONVIVA [Concomitant]
     Active Substance: IBANDRONATE SODIUM
     Indication: OSTEOPOROSIS
     Dosage: 3 MG, Q3MO
     Route: 042

REACTIONS (11)
  - Atypical mycobacterial infection [Unknown]
  - Anaemia [Not Recovered/Not Resolved]
  - Hepatic failure [Fatal]
  - Cardiac failure [Unknown]
  - Hyperkalaemia [Fatal]
  - Sepsis [Fatal]
  - Encephalopathy [Fatal]
  - Pleural effusion [Unknown]
  - Renal failure [Fatal]
  - Septic shock [Fatal]
  - Thrombocytopenia [Unknown]

NARRATIVE: CASE EVENT DATE: 20130626
